FAERS Safety Report 9581970 (Version 1)
Quarter: 2013Q4

REPORT INFORMATION
  Report Type: Spontaneous
  Country: GB (occurrence: GB)
  Receive Date: 20131002
  Receipt Date: 20131002
  Transmission Date: 20140711
  Serious: Yes (Other)
  Sender: FDA-Public Use
  Company Number: GB-PFIZER INC-2013277973

PATIENT
  Age: 6 Year
  Sex: Male
  Weight: 26 kg

DRUGS (3)
  1. PHENYTOIN [Suspect]
  2. MEBENDAZOLE [Interacting]
     Indication: ENTEROBIASIS
     Dosage: 100 MG, WEEKLY
     Route: 048
     Dates: start: 20120319, end: 20120402
  3. LAMOTRIGINE [Concomitant]

REACTIONS (3)
  - Drug interaction [Unknown]
  - Seizure cluster [Recovered/Resolved]
  - Convulsion [Unknown]
